FAERS Safety Report 21445682 (Version 1)
Quarter: 2022Q4

REPORT INFORMATION
  Report Type: Spontaneous
  Country: US (occurrence: None)
  Receive Date: 20221011
  Receipt Date: 20221011
  Transmission Date: 20230112
  Serious: Yes (Death, Life-Threatening, Hospitalization)
  Sender: FDA-Public Use
  Company Number: None

PATIENT
  Age: 51 Year
  Sex: Male

DRUGS (1)
  1. AUSTEDO [Suspect]
     Active Substance: DEUTETRABENAZINE

REACTIONS (12)
  - Intentional product use issue [None]
  - Suicide attempt [None]
  - Therapy interrupted [None]
  - Family stress [None]
  - Intentional self-injury [None]
  - Hanging [None]
  - Fall [None]
  - Mood altered [None]
  - Coma scale abnormal [None]
  - Subdural haematoma [None]
  - Subarachnoid haemorrhage [None]
  - Skull fractured base [None]

NARRATIVE: CASE EVENT DATE: 20221010
